FAERS Safety Report 16235945 (Version 2)
Quarter: 2020Q2

REPORT INFORMATION
  Report Type: Spontaneous
  Country: PT (occurrence: PT)
  Receive Date: 20190425
  Receipt Date: 20200526
  Transmission Date: 20200713
  Serious: Yes (Hospitalization)
  Sender: FDA-Public Use
  Company Number: PT-SUN PHARMACEUTICAL INDUSTRIES LTD-2019R1-206201

PATIENT
  Age: 40 Year
  Sex: Male

DRUGS (2)
  1. BUPROPION. [Suspect]
     Active Substance: BUPROPION
     Indication: DRUG DEPENDENCE
     Dosage: INGESTING 16 BUPROPION 300 MG TABLETS
     Route: 065
  2. ALKYL NITRITES [SODIUM NITRATE] [Suspect]
     Active Substance: SODIUM NITRATE
     Indication: PRODUCT USED FOR UNKNOWN INDICATION
     Dosage: UNK
     Route: 065

REACTIONS (4)
  - Overdose [Unknown]
  - Substance use [Unknown]
  - Methaemoglobinaemia [Recovering/Resolving]
  - Generalised tonic-clonic seizure [Recovered/Resolved]
